FAERS Safety Report 6176008-5 (Version None)
Quarter: 2009Q2

REPORT INFORMATION
  Report Type: 
  Country: None (occurrence: None)
  Receive Date: 20090501
  Receipt Date: 20090427
  Transmission Date: 20091009
  Serious: Yes (Death)
  Sender: FDA-Public Use
  Company Number: US-ROCHE-628973

PATIENT
  Sex: Female
  Weight: 88.9 kg

DRUGS (11)
  1. TAMIFLU [Suspect]
     Indication: INFLUENZA
     Route: 048
     Dates: start: 20090406, end: 20090411
  2. RIMANTADINE HYDROCHLORIDE [Suspect]
     Indication: INFLUENZA
     Dosage: DRUG REPORTED AS: RIMANTIDINE
     Route: 048
     Dates: start: 20090406, end: 20090413
  3. GEMFIBROZIL [Concomitant]
     Route: 048
  4. GLIPIZIDE [Concomitant]
     Indication: DIABETES MELLITUS
     Route: 048
  5. HYDROCHLOROTHIAZIDE [Concomitant]
     Indication: HYPERTENSION
     Route: 048
  6. LANOXIN [Concomitant]
     Route: 048
  7. LEVOXYL [Concomitant]
     Route: 048
  8. LISINOPRIL [Concomitant]
     Indication: HYPERTENSION
     Dosage: OTHER INDICATION: DIABETES MELLITUS (DM)
     Route: 048
  9. NORVASC [Concomitant]
     Indication: HYPERTENSION
     Route: 048
  10. PROPRANOLOL [Concomitant]
     Indication: HYPERTENSION
     Dosage: OTHER INDICATION: TREMOR
     Route: 048
  11. ZANTAC [Concomitant]
     Route: 048

REACTIONS (3)
  - ANAEMIA [None]
  - HYPERKALAEMIA [None]
  - MALAISE [None]
